FAERS Safety Report 16389341 (Version 1)
Quarter: 2019Q2

REPORT INFORMATION
  Report Type: Spontaneous
  Country: US (occurrence: US)
  Receive Date: 20190604
  Receipt Date: 20190604
  Transmission Date: 20190711
  Serious: Yes (Other)
  Sender: FDA-Public Use
  Company Number: US-NEUROCRINE BIOSCIENCES INC.-2019NBI01361

PATIENT
  Age: 44 Year
  Sex: Male

DRUGS (8)
  1. NORVASC [Concomitant]
     Active Substance: AMLODIPINE BESYLATE
     Indication: DEPRESSION
  2. RISPERDAL [Concomitant]
     Active Substance: RISPERIDONE
     Indication: SCHIZOAFFECTIVE DISORDER DEPRESSIVE TYPE
  3. PROZAC [Concomitant]
     Active Substance: FLUOXETINE HYDROCHLORIDE
     Indication: ANXIETY
  4. INGREZZA [Suspect]
     Active Substance: VALBENAZINE
     Route: 048
     Dates: start: 20190510, end: 20190514
  5. PROZAC [Concomitant]
     Active Substance: FLUOXETINE HYDROCHLORIDE
     Indication: DEPRESSION
  6. INGREZZA [Suspect]
     Active Substance: VALBENAZINE
     Indication: TARDIVE DYSKINESIA
     Route: 048
     Dates: start: 20190429
  7. RISPERDAL [Concomitant]
     Active Substance: RISPERIDONE
     Indication: DEPRESSION
  8. NORVASC [Concomitant]
     Active Substance: AMLODIPINE BESYLATE
     Indication: HYPERTENSION
     Dosage: IN THE MORNING

REACTIONS (1)
  - Urticaria [Recovering/Resolving]

NARRATIVE: CASE EVENT DATE: 20190514
